FAERS Safety Report 20080764 (Version 3)
Quarter: 2022Q2

REPORT INFORMATION
  Report Type: Spontaneous
  Country: US (occurrence: US)
  Receive Date: 20211117
  Receipt Date: 20220524
  Transmission Date: 20220721
  Serious: No
  Sender: FDA-Public Use
  Company Number: US-PFIZER INC-202101513278

PATIENT
  Age: 56 Year
  Sex: Female

DRUGS (3)
  1. XELJANZ [Suspect]
     Active Substance: TOFACITINIB CITRATE
     Indication: Rheumatoid arthritis
     Dosage: 5 MG, 2X/DAY
     Route: 048
     Dates: start: 20211004
  2. PREDNISONE [Suspect]
     Active Substance: PREDNISONE
     Dosage: UNK, 2X/DAY
  3. PREDNISONE [Suspect]
     Active Substance: PREDNISONE
     Dosage: UNK, ALTERNATE DAY (EVERY OTHER DAY)

REACTIONS (9)
  - Pain [Not Recovered/Not Resolved]
  - Therapeutic product effect incomplete [Unknown]
  - Arthropathy [Unknown]
  - Pain in extremity [Not Recovered/Not Resolved]
  - Arthritis [Unknown]
  - Oropharyngeal pain [Recovered/Resolved]
  - Rhinorrhoea [Recovered/Resolved]
  - Blood cholesterol increased [Recovering/Resolving]
  - Musculoskeletal stiffness [Unknown]
